FAERS Safety Report 24934917 (Version 1)
Quarter: 2025Q1

REPORT INFORMATION
  Report Type: Report from Study
  Country: TH (occurrence: TH)
  Receive Date: 20250206
  Receipt Date: 20250206
  Transmission Date: 20250409
  Serious: Yes (Other)
  Sender: TAKEDA
  Company Number: TH-TAKEDA-2024TUS006356

PATIENT
  Age: 44 Year
  Sex: Male

DRUGS (4)
  1. VEDOLIZUMAB [Suspect]
     Active Substance: VEDOLIZUMAB
     Indication: Crohn^s disease
  2. PREDNISOLONE [Suspect]
     Active Substance: PREDNISOLONE
     Indication: Product used for unknown indication
  3. CHLORPHENIRAMINE MALEATE [Concomitant]
     Active Substance: CHLORPHENIRAMINE MALEATE
     Indication: Premedication
  4. ACETAMINOPHEN [Concomitant]
     Active Substance: ACETAMINOPHEN
     Indication: Premedication

REACTIONS (14)
  - Gastrointestinal haemorrhage [Unknown]
  - Neuropathy peripheral [Unknown]
  - Spinal compression fracture [Unknown]
  - Cataract [Unknown]
  - Hypoaesthesia [Unknown]
  - Diarrhoea [Unknown]
  - Abdominal pain upper [Unknown]
  - Weight decreased [Unknown]
  - Osteoporosis [Unknown]
  - Stress [Unknown]
  - Insomnia [Unknown]
  - Malabsorption [Unknown]
  - Body height decreased [Unknown]
  - Pallor [Unknown]
